FAERS Safety Report 8564239-6 (Version None)
Quarter: 2012Q3

REPORT INFORMATION
  Report Type: 
  Country: None (occurrence: None)
  Receive Date: 20120803
  Receipt Date: 20120730
  Transmission Date: 20120928
  Serious: Yes (Other)
  Sender: FDA-Public Use
  Company Number: US-JNJFOC-20120613626

PATIENT
  Sex: Male
  Weight: 54.43 kg

DRUGS (5)
  1. RETROVIR [Concomitant]
     Indication: HIV INFECTION
     Route: 048
     Dates: start: 20070101
  2. INTELENCE [Suspect]
     Indication: HIV INFECTION
     Route: 048
     Dates: start: 20070101
  3. FUZEON [Concomitant]
     Indication: HIV INFECTION
     Route: 058
     Dates: start: 20070101
  4. PREZISTA [Concomitant]
     Indication: HIV INFECTION
     Route: 048
     Dates: start: 20070101
  5. ISENTRESS [Concomitant]
     Indication: HIV INFECTION
     Route: 048
     Dates: start: 20070101

REACTIONS (5)
  - PRODUCT COATING ISSUE [None]
  - RETCHING [None]
  - CHOKING [None]
  - BURN OESOPHAGEAL [None]
  - PRODUCT SOLUBILITY ABNORMAL [None]
